FAERS Safety Report 16144523 (Version 1)
Quarter: 2019Q2

REPORT INFORMATION
  Report Type: Spontaneous
  Country: DE (occurrence: DE)
  Receive Date: 20190402
  Receipt Date: 20190402
  Transmission Date: 20190711
  Serious: Yes (Other)
  Sender: FDA-Public Use
  Company Number: PHHY2019DE069730

PATIENT
  Age: 76 Year
  Sex: Male
  Weight: 92.4 kg

DRUGS (2)
  1. VARGATEF [Suspect]
     Active Substance: NINTEDANIB
     Indication: LUNG ADENOCARCINOMA
     Dosage: 400 MG, UNK
     Route: 048
     Dates: start: 201701, end: 201704
  2. DOCETAXEL. [Suspect]
     Active Substance: DOCETAXEL
     Indication: LUNG ADENOCARCINOMA
     Dosage: 75 MG/M2 BODY SURFACE AREA (BSA)
     Route: 042

REACTIONS (7)
  - Neutrophil count decreased [Recovered/Resolved]
  - Vertebral lesion [Unknown]
  - Hyperkalaemia [Recovered/Resolved]
  - Hyperkalaemia [Unknown]
  - Nausea [Unknown]
  - Neutrophil count decreased [Recovered/Resolved]
  - Neutrophil count decreased [Recovered/Resolved]

NARRATIVE: CASE EVENT DATE: 20170202
